FAERS Safety Report 13007987 (Version 1)
Quarter: 2016Q4

REPORT INFORMATION
  Report Type: Spontaneous
  Country: US (occurrence: US)
  Receive Date: 20161208
  Receipt Date: 20161208
  Transmission Date: 20170207
  Serious: No
  Sender: FDA-Public Use
  Company Number: US-AUROBINDO-AUR-APU-2016-01702

PATIENT
  Age: 75 Year
  Sex: Female

DRUGS (1)
  1. GLYBURIDE TABLETS USP 5MG [Suspect]
     Active Substance: GLYBURIDE
     Indication: PRODUCT USED FOR UNKNOWN INDICATION
     Dosage: 5 MG, UNK
     Route: 065

REACTIONS (3)
  - Nausea [Unknown]
  - Eructation [Unknown]
  - Abdominal pain upper [Unknown]
